FAERS Safety Report 25714296 (Version 1)
Quarter: 2025Q3

REPORT INFORMATION
  Report Type: Spontaneous
  Country: US (occurrence: US)
  Receive Date: 20250822
  Receipt Date: 20250822
  Transmission Date: 20251021
  Serious: Yes (Life-Threatening, Hospitalization)
  Sender: PHARMAXIS
  Company Number: None

PATIENT
  Age: 17 Year
  Sex: Male
  Weight: 70 kg

DRUGS (1)
  1. MANNITOL [Suspect]
     Active Substance: MANNITOL
     Indication: Intracranial pressure increased
     Dosage: 20 PERCENT
     Route: 042

REACTIONS (3)
  - Hypernatraemia [Recovered/Resolved]
  - Unmasking of previously unidentified disease [Recovered/Resolved]
  - Diabetes insipidus [Recovered/Resolved]
